FAERS Safety Report 9152021 (Version 2)
Quarter: 2013Q1

REPORT INFORMATION
  Report Type: Report from Study
  Country: JP (occurrence: JP)
  Receive Date: 20130308
  Receipt Date: 20130326
  Transmission Date: 20140127
  Serious: Yes (Hospitalization)
  Sender: FDA-Public Use
  Company Number: JP-GLAXOSMITHKLINE-B0872083A

PATIENT
  Age: 79 Year
  Sex: Female

DRUGS (13)
  1. TYKERB [Suspect]
     Indication: BREAST CANCER
     Route: 048
     Dates: start: 20091212
  2. XELODA [Concomitant]
     Route: 048
     Dates: start: 20091212, end: 20101104
  3. NORVASC [Concomitant]
     Indication: HYPERTENSION
     Route: 048
  4. MEVALOTIN [Concomitant]
     Indication: HYPERLIPIDAEMIA
     Route: 048
  5. BONALON [Concomitant]
     Indication: OSTEOPOROSIS
     Route: 048
     Dates: end: 20091219
  6. URSO [Concomitant]
     Indication: LIVER DISORDER
     Route: 048
     Dates: end: 20100112
  7. FUROSEMIDE [Concomitant]
     Indication: ASCITES
     Route: 048
     Dates: start: 20100320, end: 20100405
  8. FUROSEMIDE [Concomitant]
     Indication: ASCITES
     Route: 048
     Dates: start: 20100831, end: 20100920
  9. ALDACTONE A [Concomitant]
     Indication: ASCITES
     Route: 048
     Dates: start: 20100320, end: 20100405
  10. ALDACTONE A [Concomitant]
     Indication: ASCITES
     Route: 048
     Dates: start: 20100831, end: 20100920
  11. LOXONIN [Concomitant]
     Indication: BACK PAIN
     Route: 048
     Dates: start: 20100408, end: 20100428
  12. LOXONIN [Concomitant]
     Indication: BACK PAIN
     Route: 048
     Dates: start: 20101022
  13. CHINESE MEDICINE [Concomitant]
     Indication: PROPHYLAXIS
     Route: 048
     Dates: start: 20101001, end: 20101111

REACTIONS (4)
  - Cellulitis [Recovered/Resolved]
  - Skin infection [Recovered/Resolved]
  - Hepatic function abnormal [Recovering/Resolving]
  - Diarrhoea [Recovered/Resolved]
